FAERS Safety Report 9646176 (Version 1)
Quarter: 2013Q4

REPORT INFORMATION
  Report Type: Spontaneous
  Country: AU (occurrence: None)
  Receive Date: 20131024
  Receipt Date: 20131024
  Transmission Date: 20140711
  Serious: Yes (Hospitalization)
  Sender: FDA-Public Use
  Company Number: FK201304629

PATIENT
  Age: 24 Year
  Sex: Female

DRUGS (3)
  1. VALPROATE [Suspect]
     Indication: CONVULSION
     Dosage: 200 MG, 2 IN 1 D, UNKNOWN
  2. DOXEPIN (DOXEPIN) (DOXEPIN) [Suspect]
     Indication: PRODUCT USED FOR UNKNOWN INDICATION
     Dosage: 450 MG, 1 IN 1 D, UNKNOWN
  3. CLONAZEPAM (CLONAZEPAM) (CLONAZEPAM) [Concomitant]

REACTIONS (3)
  - Convulsion [None]
  - Anxiety [None]
  - Encephalopathy [None]
